FAERS Safety Report 8134469-6 (Version None)
Quarter: 2012Q1

REPORT INFORMATION
  Report Type: 
  Country: None (occurrence: None)
  Receive Date: 20120214
  Receipt Date: 20120214
  Transmission Date: 20120608
  Serious: Yes (Disabling)
  Sender: FDA-Public Use
  Company Number: None

PATIENT
  Age: 62 Year
  Sex: Male
  Weight: 93 kg

DRUGS (1)
  1. ERTAPENEM [Suspect]
     Indication: ABDOMINAL INFECTION
     Dosage: 1000MG
     Route: 042
     Dates: start: 20120209, end: 20120212

REACTIONS (2)
  - RENAL IMPAIRMENT [None]
  - GRAND MAL CONVULSION [None]
